FAERS Safety Report 8582356 (Version 2)
Quarter: 2012Q4

REPORT INFORMATION
  Report Type: 
  Country: ES (occurrence: ES)
  Receive Date: 20120528
  Receipt Date: 20121130
  Transmission Date: 20130627
  Serious: Yes (Other)
  Sender: FDA-Public Use
  Company Number: ES-ROCHE-1070105

PATIENT

DRUGS (3)
  1. CAPECITABINE [Suspect]
     Indication: COLORECTAL CANCER
     Route: 048
  2. CETUXIMAB [Suspect]
     Indication: COLORECTAL CANCER
     Dosage: 2-hr infusion followed by 250 mg/m2.
     Route: 042
  3. CETUXIMAB [Suspect]
     Dosage: weekly dose.
     Route: 042

REACTIONS (13)
  - Palmar-plantar erythrodysaesthesia syndrome [Unknown]
  - Paronychia [Unknown]
  - Dermatitis acneiform [Unknown]
  - Diarrhoea [Unknown]
  - Mucosal inflammation [Unknown]
  - Pulmonary embolism [Unknown]
  - Eye disorder [Unknown]
  - Blepharitis [Unknown]
  - Conjunctivitis [Unknown]
  - Keratitis [Unknown]
  - Deep vein thrombosis [Unknown]
  - Neutropenia [Unknown]
  - Myocardial infarction [Unknown]
